FAERS Safety Report 5397161-7 (Version None)
Quarter: 2007Q3

REPORT INFORMATION
  Report Type: 
  Country: None (occurrence: None)
  Receive Date: 20070725
  Receipt Date: 20070713
  Transmission Date: 20080115
  Serious: Yes (Hospitalization)
  Sender: FDA-Public Use
  Company Number: JP-PFIZER INC-2007047815

PATIENT
  Age: 74 Year
  Sex: Male
  Weight: 48 kg

DRUGS (7)
  1. AZULFIDINE EN-TABS [Suspect]
     Indication: RHEUMATOID ARTHRITIS
     Route: 048
     Dates: start: 20070509, end: 20070604
  2. LOXOPROFEN SODIUM [Concomitant]
     Route: 048
  3. FAMOTIDINE [Concomitant]
     Route: 048
  4. HALCION [Concomitant]
     Route: 048
  5. BROTIZOLAM [Concomitant]
     Route: 048
  6. DISOPYRAMIDE [Concomitant]
     Route: 048
  7. HERBAL PREPARATION INGREDIENTS UNKNOWN [Concomitant]
     Route: 048

REACTIONS (1)
  - ERYTHEMA [None]
